FAERS Safety Report 9491506 (Version 2)
Quarter: 2013Q1

REPORT INFORMATION
  Report Type: Not Available
  Country: US (occurrence: US)
  Receive Date: 20121219
  Receipt Date: 20121219
  Transmission Date: 20140127
  Serious: Yes (Hospitalization)
  Sender: FDA-Public Use
  Company Number: US-LUNDBECK-DKLU1068055

PATIENT
  Age: 11 None
  Sex: Female

DRUGS (8)
  1. CLOBAZAM [Suspect]
     Indication: LENNOX-GASTAUT SYNDROME
     Route: 048
     Dates: start: 20090327
  2. CLOBAZAM [Suspect]
     Route: 048
     Dates: start: 20100105, end: 20100405
  3. CLOBAZAM [Suspect]
     Route: 048
     Dates: start: 20100105, end: 20100405
  4. CLOBAZAM [Suspect]
     Route: 048
     Dates: start: 20100406
  5. LAMICTAL [Concomitant]
     Indication: EPILEPSY
     Route: 048
     Dates: start: 20100407
  6. KEPPRA [Concomitant]
     Indication: EPILEPSY
     Route: 048
     Dates: start: 20021002
  7. FELBATOL [Concomitant]
     Indication: EPILEPSY
     Route: 048
     Dates: start: 20100105
  8. FELBATOL [Concomitant]
     Route: 048
     Dates: start: 20100105

REACTIONS (1)
  - Swelling face [Recovered/Resolved]
